FAERS Safety Report 8167495-1 (Version None)
Quarter: 2012Q1

REPORT INFORMATION
  Report Type: 
  Country: None (occurrence: None)
  Receive Date: 20120103
  Receipt Date: 20111007
  Transmission Date: 20120608
  Serious: No
  Sender: FDA-Public Use
  Company Number: AE-2011-002155

PATIENT
  Age: 56 Year
  Sex: Male
  Weight: 90.7194 kg

DRUGS (4)
  1. RIBAVIRIN [Concomitant]
  2. CELEXA [Concomitant]
  3. INCIVEK [Suspect]
     Dosage: 2250 MG (750 MG, 3 IN 1 D), ORAL
     Route: 048
     Dates: start: 20111005
  4. PEGASYS [Concomitant]

REACTIONS (3)
  - INFUSION SITE PAIN [None]
  - DEPRESSION [None]
  - INJECTION SITE ERYTHEMA [None]
